FAERS Safety Report 9804027 (Version 1)
Quarter: 2014Q1

REPORT INFORMATION
  Report Type: Spontaneous
  Country: US (occurrence: US)
  Receive Date: 20140108
  Receipt Date: 20140108
  Transmission Date: 20141002
  Serious: Yes (Death)
  Sender: FDA-Public Use
  Company Number: US-PFIZER INC-2014004693

PATIENT
  Age: 68 Year
  Sex: Male
  Weight: 96.15 kg

DRUGS (3)
  1. NORVASC [Suspect]
     Dosage: UNK
  2. NEURONTIN [Suspect]
     Indication: DIABETIC NEPHROPATHY
     Dosage: 800 MG, 4X/DAY
  3. INSULIN [Concomitant]
     Dosage: UNK

REACTIONS (1)
  - Cardiac disorder [Fatal]
